FAERS Safety Report 20142627 (Version 1)
Quarter: 2021Q4

REPORT INFORMATION
  Report Type: Other
  Country: US (occurrence: None)
  Receive Date: 20211202
  Receipt Date: 20211202
  Transmission Date: 20220303
  Serious: No
  Sender: FDA-Public Use
  Company Number: US-ROCHE-2698170

PATIENT
  Age: 52 Year
  Sex: Male

DRUGS (7)
  1. DIAZEPAM [Suspect]
     Active Substance: DIAZEPAM
     Indication: Oromandibular dystonia
     Route: 065
  2. TRIHEXYPHENIDYL [Concomitant]
     Active Substance: TRIHEXYPHENIDYL
  3. ALPRAZOLAM [Concomitant]
     Active Substance: ALPRAZOLAM
  4. TETRABENAZINE [Concomitant]
     Active Substance: TETRABENAZINE
  5. LEVODOPA [Concomitant]
     Active Substance: LEVODOPA
  6. BACLOFEN [Concomitant]
     Active Substance: BACLOFEN
  7. TIZANIDINE [Concomitant]
     Active Substance: TIZANIDINE

REACTIONS (1)
  - Drug ineffective [Unknown]
